FAERS Safety Report 11302879 (Version 2)
Quarter: 2015Q4

REPORT INFORMATION
  Report Type: Report from Study
  Country: GR (occurrence: GR)
  Receive Date: 20150723
  Receipt Date: 20151125
  Transmission Date: 20160304
  Serious: Yes (Death, Hospitalization, Other)
  Sender: FDA-Public Use
  Company Number: GR-INCYTE CORPORATION-2015IN002783

PATIENT
  Age: 81 Year
  Sex: Male
  Weight: 90 kg

DRUGS (2)
  1. PACLITAXEL. [Suspect]
     Active Substance: PACLITAXEL
     Indication: PRODUCT USED FOR UNKNOWN INDICATION
     Dosage: UNK
     Route: 065
  2. JAKAFI [Suspect]
     Active Substance: RUXOLITINIB
     Indication: MYELOFIBROSIS
     Dosage: 10 MG, BID
     Route: 048
     Dates: start: 20141202

REACTIONS (6)
  - Pleural effusion [Unknown]
  - Pericardial effusion malignant [Recovering/Resolving]
  - Second primary malignancy [Unknown]
  - Adenocarcinoma [Recovering/Resolving]
  - Non-small cell lung cancer [Unknown]
  - Death [Fatal]

NARRATIVE: CASE EVENT DATE: 20150530
